FAERS Safety Report 7626408-9 (Version None)
Quarter: 2011Q3

REPORT INFORMATION
  Report Type: 
  Country: None (occurrence: None)
  Receive Date: 20110721
  Receipt Date: 20110715
  Transmission Date: 20111222
  Serious: Yes (Hospitalization, Disabling)
  Sender: FDA-Public Use
  Company Number: CA-SANOFI-AVENTIS-2011SA045249

PATIENT

DRUGS (3)
  1. CALCIUM/MAGNESIUM [Suspect]
     Indication: PROPHYLAXIS
  2. FLUOROURACIL [Suspect]
     Indication: COLORECTAL CANCER
  3. ELOXATIN [Suspect]
     Indication: COLORECTAL CANCER

REACTIONS (1)
  - CEREBROVASCULAR ACCIDENT [None]
